FAERS Safety Report 4379619-2 (Version None)
Quarter: 2004Q2

REPORT INFORMATION
  Report Type: 
  Country: None (occurrence: None)
  Receive Date: 20040614
  Receipt Date: 20040528
  Transmission Date: 20050107
  Serious: Yes (Other)
  Sender: FDA-Public Use
  Company Number: 237434

PATIENT
  Sex: Female

DRUGS (1)
  1. ACTIVELLA [Suspect]
     Indication: MENOPAUSAL SYMPTOMS
     Dosage: 1 TAB, QD, PER ORAL
     Route: 048

REACTIONS (1)
  - ENDOMETRIAL CANCER [None]
